FAERS Safety Report 12228156 (Version 3)
Quarter: 2016Q2

REPORT INFORMATION
  Report Type: Report from Study
  Country: CH (occurrence: CH)
  Receive Date: 20160401
  Receipt Date: 20160527
  Transmission Date: 20160815
  Serious: Yes (Death, Other)
  Sender: FDA-Public Use
  Company Number: CH-BRISTOL-MYERS SQUIBB COMPANY-BMS-2016-021568

PATIENT
  Age: 35 Year
  Sex: Female

DRUGS (2)
  1. NIVOLUMAB [Suspect]
     Active Substance: NIVOLUMAB
     Indication: METASTATIC MALIGNANT MELANOMA
     Dosage: 3 MG/KG, Q2WK
     Route: 065
     Dates: start: 20150701
  2. IPILIMUMAB [Suspect]
     Active Substance: IPILIMUMAB
     Indication: METASTATIC MALIGNANT MELANOMA
     Dosage: 3 MG/KG, Q3WK
     Route: 065
     Dates: start: 201502, end: 201504

REACTIONS (9)
  - Diffuse alveolar damage [Unknown]
  - Myocarditis [Unknown]
  - Pneumonitis [Unknown]
  - Malignant neoplasm progression [Fatal]
  - Lymphocytosis [Unknown]
  - Liver disorder [Unknown]
  - Encephalitis [Unknown]
  - Sarcoidosis [Unknown]
  - Granuloma [Unknown]
